FAERS Safety Report 7176550-4 (Version None)
Quarter: 2010Q4

REPORT INFORMATION
  Report Type: 
  Country: None (occurrence: None)
  Receive Date: 20101220
  Receipt Date: 20101213
  Transmission Date: 20110411
  Serious: Yes (Other)
  Sender: FDA-Public Use
  Company Number: VE-PFIZER INC-2010171829

PATIENT
  Age: 70 Year
  Sex: Female

DRUGS (2)
  1. LIPITOR [Suspect]
     Indication: HYPERCHOLESTEROLAEMIA
     Dosage: 40 MG, 1X/DAY
     Route: 048
  2. BENICAR HCT [Concomitant]
     Indication: HYPERTENSION
     Dosage: 20/12,5 MG UNK
     Route: 048

REACTIONS (1)
  - CHOLELITHIASIS [None]
